FAERS Safety Report 13471677 (Version 4)
Quarter: 2018Q2

REPORT INFORMATION
  Report Type: Spontaneous
  Country: US (occurrence: US)
  Receive Date: 20170424
  Receipt Date: 20180507
  Transmission Date: 20180711
  Serious: No
  Sender: FDA-Public Use
  Company Number: US-PFIZER INC-2017135991

PATIENT
  Age: 72 Year
  Sex: Female
  Weight: 45 kg

DRUGS (21)
  1. BACLOFEN. [Concomitant]
     Active Substance: BACLOFEN
     Dosage: 10 MG, UNK
  2. LEVOTHYROXINE. [Concomitant]
     Active Substance: LEVOTHYROXINE
     Dosage: 25 MG, ONCE A DAY
     Route: 048
  3. MOVANTIK [Concomitant]
     Active Substance: NALOXEGOL OXALATE
     Dosage: UNK
  4. AMITRIPTYLINE [Concomitant]
     Active Substance: AMITRIPTYLINE
     Indication: SLEEP DISORDER
     Dosage: 10 MG, UNK
  5. BENAZEPRIL [Concomitant]
     Active Substance: BENAZEPRIL HYDROCHLORIDE
     Indication: CARDIAC DISORDER
     Dosage: 10 MG, UNK
  6. BENAZEPRIL [Concomitant]
     Active Substance: BENAZEPRIL HYDROCHLORIDE
     Dosage: 20 MG, ONCE A DAY
     Route: 048
  7. LEVOTHYROXINE. [Concomitant]
     Active Substance: LEVOTHYROXINE
     Indication: HYPOTHYROIDISM
     Dosage: 25MCG, UNK
  8. PROLIA [Concomitant]
     Active Substance: DENOSUMAB
     Dosage: UNK
  9. MINITRAN [Concomitant]
     Active Substance: NITROGLYCERIN
     Indication: CARDIAC DISORDER
     Dosage: 0.4MG 12 HOURS ON AND 12 HOURS OFF
     Route: 062
  10. ONDANSETRON [Concomitant]
     Active Substance: ONDANSETRON
     Dosage: UNK
  11. PANTOPRAZOLE [Concomitant]
     Active Substance: PANTOPRAZOLE
     Dosage: UNK
  12. CRESTOR [Concomitant]
     Active Substance: ROSUVASTATIN CALCIUM
     Indication: BLOOD CHOLESTEROL INCREASED
     Dosage: 10MG ONCE A DAY AT NIGHT
     Route: 048
  13. LYRICA [Suspect]
     Active Substance: PREGABALIN
     Indication: SYSTEMIC LUPUS ERYTHEMATOSUS
     Dosage: 50 MG, THREE TIMES A DAY
  14. NORVASC [Concomitant]
     Active Substance: AMLODIPINE BESYLATE
     Indication: CARDIAC DISORDER
     Dosage: 5 MG, ONCE A DAY
     Route: 048
  15. LYRICA [Suspect]
     Active Substance: PREGABALIN
     Indication: RHEUMATOID ARTHRITIS
     Dosage: 50 MG, FOUR TIMES A DAY
     Route: 048
     Dates: start: 20170303
  16. LYRICA [Suspect]
     Active Substance: PREGABALIN
     Indication: FIBROMYALGIA
  17. AMITRIPTYLINE [Concomitant]
     Active Substance: AMITRIPTYLINE
     Dosage: 20MG ONCE A DAY AT NIGHT
     Route: 048
  18. BELSOMRA [Concomitant]
     Active Substance: SUVOREXANT
     Dosage: 20 MG, UNK
  19. LORATADINE. [Concomitant]
     Active Substance: LORATADINE
     Dosage: UNK
  20. IMDUR [Concomitant]
     Active Substance: ISOSORBIDE MONONITRATE
     Indication: CARDIAC DISORDER
     Dosage: 30 MG, ONCE A ADAY
     Route: 048
  21. NUCYNTA [Concomitant]
     Active Substance: TAPENTADOL HYDROCHLORIDE
     Indication: BACK DISORDER
     Dosage: UNK
     Dates: start: 201704

REACTIONS (7)
  - Product use issue [Unknown]
  - Chest discomfort [Recovering/Resolving]
  - Headache [Recovering/Resolving]
  - Dyspnoea [Recovering/Resolving]
  - Chest pain [Recovered/Resolved]
  - Balance disorder [Recovering/Resolving]
  - Pain in extremity [Unknown]

NARRATIVE: CASE EVENT DATE: 201703
